FAERS Safety Report 5305440-4 (Version None)
Quarter: 2007Q1

REPORT INFORMATION
  Report Type: 
  Country: None (occurrence: None)
  Receive Date: 20070201
  Receipt Date: 20061110
  Transmission Date: 20070707
  Serious: No
  Sender: FDA-Public Use
  Company Number: 2006PV025273

PATIENT
  Age: 58 Year
  Sex: Female
  Weight: 83.4619 kg

DRUGS (8)
  1. BYETTA [Suspect]
     Indication: DRUG USE FOR UNKNOWN INDICATION
     Dosage: SEE IMAGE
     Route: 058
  2. BYETTA [Suspect]
     Indication: DRUG USE FOR UNKNOWN INDICATION
     Dosage: SEE IMAGE
     Route: 058
  3. BYETTA [Suspect]
     Indication: DRUG USE FOR UNKNOWN INDICATION
     Dosage: SEE IMAGE
     Route: 058
  4. GLIPIZIDE ER [Concomitant]
  5. METFORMIN HCL [Concomitant]
  6. LISINOPRIL W/ HYDROCHLOROTHIAZIDE [Concomitant]
  7. PREMARIN [Concomitant]
  8. SYNTHROID [Concomitant]

REACTIONS (7)
  - BLOOD TRIGLYCERIDES DECREASED [None]
  - DRUG EFFECT DECREASED [None]
  - ENERGY INCREASED [None]
  - LOW DENSITY LIPOPROTEIN DECREASED [None]
  - NAUSEA [None]
  - VOMITING [None]
  - WEIGHT DECREASED [None]
